FAERS Safety Report 4371174-6 (Version None)
Quarter: 2004Q2

REPORT INFORMATION
  Report Type: 
  Country: None (occurrence: None)
  Receive Date: 20040604
  Receipt Date: 20040525
  Transmission Date: 20050107
  Serious: Yes (Hospitalization)
  Sender: FDA-Public Use
  Company Number: CA-ROCHE-368698

PATIENT
  Age: 41 Year
  Sex: Female

DRUGS (6)
  1. PEG-INTERFERON ALFA 2A (RO 25-8310) [Suspect]
     Dosage: FORMULATION: LIQUID.
     Route: 058
     Dates: start: 20030627, end: 20040518
  2. RIBAVIRIN [Suspect]
     Dosage: TAKEN AS SPLIT DOSE OF 400 MG AND 600 MG.
     Route: 048
     Dates: start: 20031215, end: 20040518
  3. LEVOVIRIN [Suspect]
     Route: 048
     Dates: start: 20030627, end: 20031215
  4. TYLENOL [Concomitant]
     Dates: start: 20030627
  5. L-THYROXINE [Concomitant]
     Dates: start: 20040309
  6. HYDROCORTISONE 1% [Concomitant]
     Dates: start: 20040309

REACTIONS (3)
  - BRONCHITIS [None]
  - HYPOXIA [None]
  - RESPIRATORY FAILURE [None]
